FAERS Safety Report 12923448 (Version 1)
Quarter: 2016Q4

REPORT INFORMATION
  Report Type: Spontaneous
  Country: US (occurrence: US)
  Receive Date: 20161109
  Receipt Date: 20161109
  Transmission Date: 20170207
  Serious: No
  Sender: FDA-Public Use
  Company Number: None

PATIENT

DRUGS (2)
  1. NITROPRUSSIDE SODIUM INJECTION [Suspect]
     Active Substance: SODIUM NITROPRUSSIDE
  2. NITROGLYCERIN. [Suspect]
     Active Substance: NITROGLYCERIN

REACTIONS (2)
  - Product name confusion [None]
  - Transcription medication error [None]
